FAERS Safety Report 12855884 (Version 1)
Quarter: 2016Q4

REPORT INFORMATION
  Report Type: Spontaneous
  Country: US (occurrence: US)
  Receive Date: 20161018
  Receipt Date: 20161018
  Transmission Date: 20170207
  Serious: Yes (Other)
  Sender: FDA-Public Use
  Company Number: US-AMGEN-USASP2016140153

PATIENT
  Age: 47 Year
  Sex: Female

DRUGS (1)
  1. ENBREL [Suspect]
     Active Substance: ETANERCEPT
     Indication: ANKYLOSING SPONDYLITIS
     Dosage: 50 MG, QWK
     Route: 065
     Dates: start: 200607, end: 201608

REACTIONS (3)
  - Hypoaesthesia [Recovered/Resolved]
  - Ankylosing spondylitis [Recovered/Resolved]
  - Areflexia [Unknown]

NARRATIVE: CASE EVENT DATE: 2016
